FAERS Safety Report 5764714-3 (Version None)
Quarter: 2008Q2

REPORT INFORMATION
  Report Type: 
  Country: None (occurrence: None)
  Receive Date: 20080611
  Receipt Date: 20080526
  Transmission Date: 20081010
  Serious: Yes (Death, Other)
  Sender: FDA-Public Use
  Company Number: FR-ELI_LILLY_AND_COMPANY-FR200805005061

PATIENT
  Sex: Male

DRUGS (7)
  1. ALIMTA [Suspect]
     Indication: LUNG CANCER METASTATIC
     Dosage: 975 MG EVERY FOUR WEEKS
     Route: 042
     Dates: start: 20071121, end: 20080214
  2. FOLIC ACID [Concomitant]
     Indication: VITAMIN SUPPLEMENTATION
     Dosage: UNK, UNKNOWN
     Route: 065
  3. VITAMIN B-12 [Concomitant]
     Indication: VITAMIN SUPPLEMENTATION
     Dosage: UNK, EVERY NINE WEEKS
     Route: 030
  4. DEXAMETHASONE TAB [Concomitant]
     Indication: PROPHYLAXIS
     Dosage: 4 MG, 2/D
     Route: 065
  5. ZOMETA [Concomitant]
     Dosage: 4 MG, UNKNOWN
     Route: 042
  6. ZOPHREN [Concomitant]
     Dosage: 8 MG, UNKNOWN
     Route: 065
  7. DURAGESIC-100 [Concomitant]
     Dosage: 100 UG, UNKNOWN
     Route: 058
     Dates: start: 20080101, end: 20080201

REACTIONS (7)
  - ECZEMA [None]
  - FEBRILE BONE MARROW APLASIA [None]
  - MUCOSAL INFLAMMATION [None]
  - NEUTROPENIA [None]
  - SKIN TOXICITY [None]
  - STAPHYLOCOCCAL BACTERAEMIA [None]
  - THROMBOCYTOPENIA [None]
